FAERS Safety Report 17874481 (Version 2)
Quarter: 2020Q2

REPORT INFORMATION
  Report Type: Spontaneous
  Country: DK (occurrence: DK)
  Receive Date: 20200609
  Receipt Date: 20200612
  Transmission Date: 20200714
  Serious: Yes (Other)
  Sender: FDA-Public Use
  Company Number: DK-009507513-2006DNK001470

PATIENT
  Age: 68 Year
  Sex: Female
  Weight: 88 kg

DRUGS (12)
  1. EZETIMIBE. [Suspect]
     Active Substance: EZETIMIBE
     Indication: HYPERCHOLESTEROLAEMIA
     Dosage: 10 MILLIGRAM, QD
     Route: 048
     Dates: start: 20190924
  2. ATORVASTATIN [Suspect]
     Active Substance: ATORVASTATIN
     Indication: HYPERCHOLESTEROLAEMIA
     Dosage: DOSE: VARYING
     Route: 048
     Dates: start: 20120619, end: 201909
  3. PANTOPRAZOL KRKA [Concomitant]
     Active Substance: PANTOPRAZOLE
     Indication: GASTRIC PH DECREASED
     Dosage: 40 MILLIGRAM, QD, GIVEN SINCE AT LEAST 12-OCT-2017
     Route: 048
  4. KALEORID [Concomitant]
     Active Substance: POTASSIUM CHLORIDE
     Indication: MINERAL SUPPLEMENTATION
     Dosage: 1500 MILLIGRAM, QD
     Route: 048
     Dates: start: 20150903
  5. VAGIFEM [Concomitant]
     Active Substance: ESTRADIOL
     Indication: MUCOSAL DRYNESS
     Dosage: 20 MICROGRAM, QW, DOSE
     Route: 067
     Dates: start: 20141222
  6. ROSUVASTATIN CALCIUM. [Suspect]
     Active Substance: ROSUVASTATIN CALCIUM
     Indication: HYPERCHOLESTEROLAEMIA
     Dosage: 20 MILLIGRAM, QW, INCREASED SLOWLY FROM 5 MG 2 TIMES A WEEK TO 4 TIMES PER WEEK OVER THE FIRST MONTH
     Route: 048
     Dates: start: 20190403, end: 20190822
  7. MAREVAN [Concomitant]
     Active Substance: WARFARIN SODIUM
     Indication: ANTICOAGULANT THERAPY
     Dosage: UNK, DOSE: ACCORDING TO WRITTEN INSTRUCTIONS.
     Route: 048
     Dates: start: 20140127
  8. CHOLESTYRAMINE RESIN [Suspect]
     Active Substance: CHOLESTYRAMINE
     Indication: HYPERCHOLESTEROLAEMIA
     Dosage: 16 MILLIGRAM, QD
     Route: 048
     Dates: start: 20191111
  9. IMOZOP [Concomitant]
     Active Substance: ZOPICLONE
     Indication: INSOMNIA
     Dosage: 3.75 MILLIGRAM, QD
     Route: 048
     Dates: start: 20160823
  10. COZAAR [Concomitant]
     Active Substance: LOSARTAN POTASSIUM
     Indication: HYPERTENSION
     Dosage: 100 MILLIGRAM, QD, FILM-COATED TABLET
     Route: 048
     Dates: start: 20140424
  11. SPIRON (SPIRONOLACTONE) [Concomitant]
     Active Substance: SPIRONOLACTONE
     Indication: DIURETIC THERAPY
     Dosage: 25 MILLIGRAM, QD
     Route: 048
     Dates: start: 20130719
  12. FURIX [Concomitant]
     Indication: DIURETIC THERAPY
     Dosage: 40 MILLIGRAM, QD
     Route: 048
     Dates: start: 20150713

REACTIONS (1)
  - Hallucination, auditory [Recovering/Resolving]

NARRATIVE: CASE EVENT DATE: 20190614
